FAERS Safety Report 6788877-6 (Version None)
Quarter: 2010Q2

REPORT INFORMATION
  Report Type: 
  Country: None (occurrence: None)
  Receive Date: 20100623
  Receipt Date: 20080530
  Transmission Date: 20101027
  Serious: No
  Sender: FDA-Public Use
  Company Number: US-PFIZER INC-2008046677

PATIENT
  Sex: Female
  Weight: 13.6 kg

DRUGS (1)
  1. GENOTROPIN [Suspect]
     Indication: ILL-DEFINED DISORDER
     Route: 051
     Dates: start: 20080524, end: 20080527

REACTIONS (1)
  - HEART RATE INCREASED [None]
